FAERS Safety Report 6843978-9 (Version None)
Quarter: 2010Q3

REPORT INFORMATION
  Report Type: 
  Country: None (occurrence: None)
  Receive Date: 20100715
  Receipt Date: 20100708
  Transmission Date: 20110219
  Serious: Yes (Hospitalization)
  Sender: FDA-Public Use
  Company Number: US-SANOFI-AVENTIS-2010SA040047

PATIENT
  Age: 75 Year
  Sex: Female
  Weight: 51.71 kg

DRUGS (13)
  1. AMBIEN [Suspect]
     Route: 048
     Dates: start: 20080601, end: 20100307
  2. INVESTIGATIONAL DRUG [Suspect]
     Indication: THROMBOSIS PROPHYLAXIS
     Route: 048
     Dates: start: 20081013
  3. VALIUM [Concomitant]
     Dates: start: 20000223
  4. MAGNESIUM OXIDE [Concomitant]
     Dates: start: 20070323
  5. DIGOXIN [Concomitant]
     Dates: start: 20070327
  6. MELATONIN [Concomitant]
     Dates: start: 20070705
  7. LORTAB [Concomitant]
     Dates: start: 20071205
  8. CARVEDILOL [Concomitant]
     Dates: start: 20080111
  9. VALSARTAN [Concomitant]
     Dates: start: 20081003
  10. AMLODIPINE [Concomitant]
     Dates: start: 20081003
  11. AMLODIPINE/VALSARTAN [Concomitant]
     Dates: start: 20081003, end: 20100412
  12. ASPIRIN [Concomitant]
     Dates: start: 20081013
  13. ROSUVASTATIN [Concomitant]
     Dates: start: 20090101

REACTIONS (4)
  - DIZZINESS [None]
  - FALL [None]
  - PAIN [None]
  - SKIN LACERATION [None]
